FAERS Safety Report 5092882-8 (Version None)
Quarter: 2006Q3

REPORT INFORMATION
  Report Type: 
  Country: None (occurrence: None)
  Receive Date: 20060727
  Receipt Date: 20060623
  Transmission Date: 20061208
  Serious: Yes (Other)
  Sender: FDA-Public Use
  Company Number: 2006080574

PATIENT
  Age: 51 Year
  Sex: Female
  Weight: 48.9885 kg

DRUGS (12)
  1. LYRICA [Suspect]
     Indication: PAIN
     Dosage: 25 MG (1 D)
     Dates: start: 20060613
  2. TOPAMAX [Concomitant]
  3. BACLOFEN [Concomitant]
  4. KLONOPIN [Concomitant]
  5. CATAPRES [Concomitant]
  6. WELLBUTRIN [Concomitant]
  7. OSCAL (CALCIUM CARBONATE) [Concomitant]
  8. ZOCOR [Concomitant]
  9. MAGNESIUM OXIDE (MAGNESIUM OXIDE) [Concomitant]
  10. OXYCONTIN [Concomitant]
  11. ALL OTHER THERAPEUTIC PRODUCTS (ALL OTHER THERAPEUTIC PRODUCTS) [Concomitant]
  12. KEPPRA [Concomitant]

REACTIONS (4)
  - DIZZINESS [None]
  - FEELING ABNORMAL [None]
  - VERTIGO [None]
  - WEIGHT INCREASED [None]
